FAERS Safety Report 14518363 (Version 2)
Quarter: 2018Q1

REPORT INFORMATION
  Report Type: Spontaneous
  Country: FR (occurrence: FR)
  Receive Date: 20180212
  Receipt Date: 20180329
  Transmission Date: 20180509
  Serious: Yes (Hospitalization)
  Sender: FDA-Public Use
  Company Number: FR-GLAXOSMITHKLINE-FR2018019319

PATIENT
  Age: 50 Year
  Sex: Female
  Weight: 58 kg

DRUGS (5)
  1. LAMICTAL [Suspect]
     Active Substance: LAMOTRIGINE
     Indication: MENTAL DISORDER
     Dosage: 25 MG, QD
     Route: 048
     Dates: start: 20171223, end: 20180118
  2. SERESTA [Concomitant]
     Active Substance: OXAZEPAM
     Indication: MENTAL DISORDER
     Dosage: 50 MG, QD
     Route: 048
  3. EFFEXOR LP [Concomitant]
     Active Substance: VENLAFAXINE HYDROCHLORIDE
     Indication: MENTAL DISORDER
     Dosage: 150 MG, QD
     Route: 048
  4. XANAX [Concomitant]
     Active Substance: ALPRAZOLAM
     Indication: MENTAL DISORDER
     Dosage: UNK
     Route: 048
  5. DEPAKOTE [Concomitant]
     Active Substance: DIVALPROEX SODIUM
     Indication: MENTAL DISORDER
     Dosage: 250 MG, QD
     Route: 048
     Dates: start: 2015, end: 20180103

REACTIONS (5)
  - Eosinophilia [Recovered/Resolved]
  - Cheilitis [Recovered/Resolved]
  - Face oedema [Recovered/Resolved]
  - Rash maculo-papular [Recovered/Resolved]
  - Mouth ulceration [Recovered/Resolved]

NARRATIVE: CASE EVENT DATE: 201801
